FAERS Safety Report 12896476 (Version 1)
Quarter: 2016Q4

REPORT INFORMATION
  Report Type: Spontaneous
  Country: US (occurrence: US)
  Receive Date: 20161031
  Receipt Date: 20161031
  Transmission Date: 20170207
  Serious: No
  Sender: FDA-Public Use
  Company Number: US-TEVA-690092USA

PATIENT
  Sex: Female

DRUGS (1)
  1. GUANFACINE. [Suspect]
     Active Substance: GUANFACINE
     Route: 065

REACTIONS (4)
  - Psychomotor hyperactivity [Unknown]
  - Impulsive behaviour [Unknown]
  - Product substitution issue [Unknown]
  - Disturbance in attention [Unknown]
